FAERS Safety Report 4935008-0 (Version None)
Quarter: 2006Q1

REPORT INFORMATION
  Report Type: 
  Country: None (occurrence: None)
  Receive Date: 20060127
  Receipt Date: 20051018
  Transmission Date: 20060701
  Serious: Yes (Other)
  Sender: FDA-Public Use
  Company Number: 2005145203

PATIENT
  Age: 81 Year
  Sex: Male
  Weight: 88.4514 kg

DRUGS (18)
  1. PREGABALIN (PREGABALIN) [Suspect]
     Indication: NEUROPATHY PERIPHERAL
     Dosage: 150 MG (50 MG, 3 IN 1 D)
     Dates: start: 20051013
  2. TAMSULOSIN HCL [Concomitant]
  3. ALTACE [Concomitant]
  4. ZETIA [Concomitant]
  5. POTASSIUM CHLORIDE [Concomitant]
  6. CILOSTAZOL [Concomitant]
  7. PROVIGIL [Concomitant]
  8. FUROSEMIDE [Concomitant]
  9. ZOLOFT [Concomitant]
  10. TRIMETHOPRIM [Concomitant]
  11. AVALIDE [Concomitant]
  12. NORVASC [Concomitant]
  13. METFORMIN [Concomitant]
  14. VITAMINS [Concomitant]
  15. STOOL SOFTENER (DOCUSATE SODIUM) [Concomitant]
  16. ECOTRIN (ACETYLSALICYLIC ACID) [Concomitant]
  17. FISH OIL [Concomitant]
  18. ALL OTHER THERAPEUTIC PRODUCTS [Concomitant]

REACTIONS (1)
  - URINARY INCONTINENCE [None]
